FAERS Safety Report 6558513-2 (Version None)
Quarter: 2010Q1

REPORT INFORMATION
  Report Type: 
  Country: None (occurrence: None)
  Receive Date: 20100128
  Receipt Date: 20100128
  Transmission Date: 20100710
  Serious: Yes (Other)
  Sender: FDA-Public Use
  Company Number: None

PATIENT
  Age: 32 Year
  Sex: Female
  Weight: 59.8748 kg

DRUGS (1)
  1. MIRENA [Suspect]
     Indication: CONTRACEPTION
     Dosage: INTRA-UTERINE
     Route: 015
     Dates: start: 20080608, end: 20100121

REACTIONS (8)
  - ALOPECIA [None]
  - ANXIETY [None]
  - CONVERSION DISORDER [None]
  - DIZZINESS [None]
  - NAUSEA [None]
  - NERVOUSNESS [None]
  - OVARIAN CYST [None]
  - STRESS [None]
